FAERS Safety Report 8597474-1 (Version None)
Quarter: 2012Q3

REPORT INFORMATION
  Report Type: 
  Country: None (occurrence: None)
  Receive Date: 20120816
  Receipt Date: 20120809
  Transmission Date: 20120928
  Serious: Yes (Death, Hospitalization)
  Sender: FDA-Public Use
  Company Number: KR-JNJFOC-20120801585

PATIENT
  Sex: Female

DRUGS (6)
  1. VANCOMYCIN [Suspect]
     Indication: PNEUMONIA
     Route: 065
     Dates: start: 20120719, end: 20120722
  2. VERAPAMIL [Concomitant]
     Indication: ATRIAL FIBRILLATION
     Dosage: ON 20-JUL-2012
     Route: 065
  3. DORIPENEM MONOHYDRATE [Suspect]
     Indication: PNEUMONIA
     Route: 042
     Dates: start: 20120721, end: 20120722
  4. LASIX [Concomitant]
     Indication: OLIGURIA
     Dosage: ON 21-JUL-2012
     Route: 065
  5. SOLU-MEDROL [Concomitant]
     Indication: SECONDARY ADRENOCORTICAL INSUFFICIENCY
     Route: 065
     Dates: start: 20120715, end: 20120722
  6. ANTI ARRHYTHMIC [Concomitant]
     Indication: ATRIAL FIBRILLATION
     Dosage: ON 20-JUL-2012
     Route: 065

REACTIONS (2)
  - PNEUMONIA [None]
  - SEPSIS [None]
